FAERS Safety Report 4984089-7 (Version None)
Quarter: 2006Q1

REPORT INFORMATION
  Report Type: 
  Country: None (occurrence: None)
  Receive Date: 20060306
  Receipt Date: 20051231
  Transmission Date: 20060701
  Serious: No
  Sender: FDA-Public Use
  Company Number: 33501

PATIENT
  Age: 60 Year
  Sex: Female

DRUGS (5)
  1. NEVANAC [Suspect]
     Indication: PROPHYLAXIS
  2. PRED FORTE [Concomitant]
  3. TETRACAINE POLYGYL STERILE OPHTHALMIC SOLUTION [Concomitant]
  4. MITOMYCIN [Concomitant]
  5. ZYMAR [Concomitant]

REACTIONS (2)
  - CORNEAL EPITHELIUM DEFECT [None]
  - IMPAIRED HEALING [None]
